FAERS Safety Report 13971672 (Version 1)
Quarter: 2017Q3

REPORT INFORMATION
  Report Type: Spontaneous
  Country: US (occurrence: None)
  Receive Date: 20170914
  Receipt Date: 20170914
  Transmission Date: 20171128
  Serious: No
  Sender: FDA-Public Use
  Company Number: None

PATIENT
  Age: 50 Year
  Sex: Male

DRUGS (1)
  1. CEFTRIAXONE 1GM APOTEX [Suspect]
     Active Substance: CEFTRIAXONE
     Indication: WOUND INFECTION
     Route: 042
     Dates: start: 20170831, end: 20170911

REACTIONS (1)
  - Urticaria [None]

NARRATIVE: CASE EVENT DATE: 20170911
